FAERS Safety Report 8179800-0 (Version None)
Quarter: 2012Q1

REPORT INFORMATION
  Report Type: 
  Country: None (occurrence: None)
  Receive Date: 20120302
  Receipt Date: 20120217
  Transmission Date: 20120608
  Serious: Yes (Death, Other)
  Sender: FDA-Public Use
  Company Number: AR-AMGEN-ARGSP2012011311

PATIENT
  Age: 73 Year
  Sex: Male

DRUGS (3)
  1. ENBREL [Suspect]
     Indication: PSORIASIS
     Dosage: 50 MG, 2X/WEEK
     Route: 058
     Dates: start: 20110101
  2. CARDIOREX [Concomitant]
     Dosage: UNK
  3. LEVODOPA [Concomitant]
     Dosage: UNK

REACTIONS (4)
  - ABASIA [None]
  - CARDIO-RESPIRATORY ARREST [None]
  - PARKINSON'S DISEASE [None]
  - DECREASED APPETITE [None]
